FAERS Safety Report 22914527 (Version 2)
Quarter: 2023Q4

REPORT INFORMATION
  Report Type: Report from Study
  Country: US (occurrence: US)
  Receive Date: 20230907
  Receipt Date: 20231010
  Transmission Date: 20240110
  Serious: No
  Sender: FDA-Public Use
  Company Number: US-ACADIA PHARMACEUTICALS INC.-ACA-2023-PIM-003517

PATIENT
  Sex: Male

DRUGS (2)
  1. NUPLAZID [Suspect]
     Active Substance: PIMAVANSERIN TARTRATE
     Indication: Parkinson^s disease
     Dosage: 34 MILLIGRAM, QD
     Route: 048
     Dates: start: 202308
  2. CIPRO [Suspect]
     Active Substance: CIPROFLOXACIN HYDROCHLORIDE
     Indication: Urinary tract infection

REACTIONS (13)
  - Musculoskeletal stiffness [Unknown]
  - Muscle rigidity [Unknown]
  - Dysstasia [Unknown]
  - Cough [Unknown]
  - Respiration abnormal [Unknown]
  - Delusion [Unknown]
  - Abnormal behaviour [Unknown]
  - Disorganised speech [Unknown]
  - Urinary tract infection [Unknown]
  - Gait disturbance [Unknown]
  - Constipation [Unknown]
  - Hallucination [Unknown]
  - Confusional state [Unknown]
